FAERS Safety Report 10241037 (Version 3)
Quarter: 2014Q4

REPORT INFORMATION
  Report Type: Spontaneous
  Country: JP (occurrence: JP)
  Receive Date: 20140617
  Receipt Date: 20141029
  Transmission Date: 20150528
  Serious: Yes (Life-Threatening, Other)
  Sender: FDA-Public Use
  Company Number: JP-MALLINCKRODT-T201402442

PATIENT
  Age: 56 Year
  Sex: Female
  Weight: 84.7 kg

DRUGS (48)
  1. MAGMITT [Concomitant]
     Active Substance: MAGNESIUM OXIDE
     Dosage: 1980 MG, UNK
     Route: 048
     Dates: start: 20140326, end: 20140521
  2. DECADRON [Concomitant]
     Active Substance: DEXAMETHASONE
     Dosage: 1.5 DF, UNK
     Route: 051
     Dates: start: 20140326, end: 20140326
  3. NAUZELIN [Concomitant]
     Active Substance: DOMPERIDONE
     Dosage: 10 MG, UNK
     Route: 048
     Dates: start: 20140326, end: 20140401
  4. ALOXI [Concomitant]
     Active Substance: PALONOSETRON HYDROCHLORIDE
     Dosage: 0.75 MG, UNK
     Route: 051
     Dates: start: 20140423, end: 20140423
  5. METHADONE [Suspect]
     Active Substance: METHADONE HYDROCHLORIDE
     Dosage: 10 MG, (30 MG DAILY DOSE)
     Route: 048
     Dates: start: 20140205, end: 20140225
  6. METHADONE [Suspect]
     Active Substance: METHADONE HYDROCHLORIDE
     Dosage: 20 MG, (60 MG DAILY DOSE)
     Route: 048
     Dates: start: 20140305, end: 20140401
  7. LASIX [Concomitant]
     Active Substance: FUROSEMIDE
     Dosage: 40 MG, UNK
     Route: 048
     Dates: end: 20140521
  8. BETANAMIN [Concomitant]
     Dosage: 20 MG, UNK
     Route: 048
     Dates: start: 20140205, end: 20140521
  9. DECADRON [Concomitant]
     Active Substance: DEXAMETHASONE
     Dosage: 8 MG, UNK
     Route: 048
     Dates: start: 20140423, end: 20140425
  10. DECADRON [Concomitant]
     Active Substance: DEXAMETHASONE
     Dosage: 1.5 DF, UNK
     Route: 051
     Dates: start: 20140423, end: 20140423
  11. ALOXI [Concomitant]
     Active Substance: PALONOSETRON HYDROCHLORIDE
     Dosage: 0.75 MG, UNK
     Route: 051
     Dates: start: 20140305, end: 20140305
  12. ROPION [Concomitant]
     Active Substance: FLURBIPROFEN AXETIL
     Dosage: 1 DF, UNK
     Route: 051
     Dates: start: 20140427, end: 20140505
  13. SEROQUEL [Concomitant]
     Active Substance: QUETIAPINE FUMARATE
     Dosage: 12.5 MG, UNK
     Route: 048
     Dates: end: 20140318
  14. RIVOTRIL [Concomitant]
     Active Substance: CLONAZEPAM
     Dosage: 0.5 MG, UNK
     Route: 048
     Dates: end: 20140521
  15. CYMBALTA [Concomitant]
     Active Substance: DULOXETINE HYDROCHLORIDE
     Dosage: 40 MG, UNK
     Route: 048
  16. DECADRON [Concomitant]
     Active Substance: DEXAMETHASONE
     Dosage: 8 MG, UNK
     Route: 048
     Dates: start: 20140326, end: 20140328
  17. ENDOXAN [Concomitant]
     Active Substance: CYCLOPHOSPHAMIDE
     Dosage: 1.96 DF, UNK
     Route: 051
     Dates: start: 20140305, end: 20140305
  18. METHADONE [Suspect]
     Active Substance: METHADONE HYDROCHLORIDE
     Dosage: 25 MG, (75 MG DAILY DOSE)
     Route: 048
     Dates: start: 20140402, end: 20140521
  19. PYDOXAL [Concomitant]
     Active Substance: PYRIDOXAL
     Dosage: 60 MG, UNK
     Route: 048
     Dates: end: 20140218
  20. DEPAKENE [Concomitant]
     Active Substance: VALPROIC ACID
     Dosage: 400 MG, UNK
     Route: 048
     Dates: start: 20140122, end: 20140318
  21. FARMORUBICIN [Concomitant]
     Active Substance: EPIRUBICIN HYDROCHLORIDE
     Dosage: 121.8 MG, UNK
     Route: 051
     Dates: start: 20140423, end: 20140423
  22. OXYCONTIN [Concomitant]
     Active Substance: OXYCODONE HYDROCHLORIDE
  23. EMEND [Concomitant]
     Active Substance: APREPITANT
     Dosage: 205 MG, UNK
     Route: 048
     Dates: start: 20140326, end: 20140327
  24. DECADRON [Concomitant]
     Active Substance: DEXAMETHASONE
     Dosage: 8 MG, UNK
     Route: 048
     Dates: start: 20140305, end: 20140307
  25. ALOXI [Concomitant]
     Active Substance: PALONOSETRON HYDROCHLORIDE
     Dosage: 0.75 MG, UNK
     Route: 051
     Dates: start: 20140326, end: 20140326
  26. FARMORUBICIN [Concomitant]
     Active Substance: EPIRUBICIN HYDROCHLORIDE
     Dosage: 121.8 MG, UNK
     Route: 051
     Dates: start: 20140326, end: 20140326
  27. ENDOXAN [Concomitant]
     Active Substance: CYCLOPHOSPHAMIDE
     Dosage: 1.96 DF, UNK
     Route: 051
     Dates: start: 20140423, end: 20140423
  28. METHADONE [Suspect]
     Active Substance: METHADONE HYDROCHLORIDE
     Indication: CANCER PAIN
     Dosage: 15 MG, (45 MG DAILY DOSE)
     Route: 048
     Dates: start: 20140107, end: 20140204
  29. XELODA [Concomitant]
     Active Substance: CAPECITABINE
     Dosage: 2400 MG, UNK
     Route: 048
     Dates: end: 20140211
  30. LACTULOSE. [Concomitant]
     Active Substance: LACTULOSE
     Dosage: 30 MG, UNK
     Route: 048
     Dates: end: 20140204
  31. LACTULOSE. [Concomitant]
     Active Substance: LACTULOSE
     Dosage: 90 MG, UNK
     Route: 048
     Dates: start: 20140205, end: 20140415
  32. DEPAKENE [Concomitant]
     Active Substance: VALPROIC ACID
     Dosage: 200 MG, UNK
     Route: 048
     Dates: start: 20140110, end: 20140121
  33. RISPERIDONE. [Concomitant]
     Active Substance: RISPERIDONE
     Dosage: UNK
     Route: 048
     Dates: start: 20140205, end: 20140219
  34. MUCOSTA [Concomitant]
     Active Substance: REBAMIPIDE
     Dosage: 300 MG, UNK
     Route: 048
     Dates: start: 20140418, end: 20140418
  35. METHYCOBAL [Concomitant]
     Active Substance: METHYLCOBALAMIN
     Dosage: 1500 ?G, UNK
     Route: 048
     Dates: end: 20140521
  36. ZYPREXA [Concomitant]
     Active Substance: OLANZAPINE
     Dosage: 5 MG, UNK
     Dates: start: 20140305, end: 20140521
  37. TSUMURA CHOREITO [Concomitant]
     Active Substance: UNSPECIFIED INGREDIENT
     Dosage: 3 DF, UNK
     Route: 048
     Dates: end: 20140121
  38. MAGMITT [Concomitant]
     Active Substance: MAGNESIUM OXIDE
     Dosage: 1980 MG, UNK
     Route: 048
     Dates: end: 20140121
  39. DECADRON [Concomitant]
     Active Substance: DEXAMETHASONE
     Dosage: 1.5 DF, UNK
     Route: 051
     Dates: start: 20140305, end: 20140305
  40. FARMORUBICIN [Concomitant]
     Active Substance: EPIRUBICIN HYDROCHLORIDE
     Dosage: 121.8 MG, UNK
     Route: 051
     Dates: start: 20140305, end: 20140305
  41. ENDOXAN [Concomitant]
     Active Substance: CYCLOPHOSPHAMIDE
     Dosage: 1.96 DF, UNK
     Route: 051
     Dates: start: 20140326, end: 20140326
  42. LOXONIN [Concomitant]
     Active Substance: LOXOPROFEN SODIUM
     Dosage: 180 MG, UNK
     Route: 048
     Dates: start: 20140418, end: 20140418
  43. WARFARIN [Concomitant]
     Active Substance: WARFARIN
     Dosage: 5 MG, UNK
     Route: 048
     Dates: start: 20140509, end: 20140521
  44. METHADONE [Suspect]
     Active Substance: METHADONE HYDROCHLORIDE
     Dosage: 15 MG, (45 MG DAILY DOSE)
     Route: 048
     Dates: start: 20140226, end: 20140304
  45. PURSENNID [Concomitant]
     Active Substance: SENNOSIDES A AND B
     Dosage: 12 MG, UNK
     Route: 048
     Dates: end: 20140521
  46. ZYPREXA [Concomitant]
     Active Substance: OLANZAPINE
     Dosage: 2.5 MG, UNK
     Route: 048
     Dates: end: 20140304
  47. DEPAKENE [Concomitant]
     Active Substance: VALPROIC ACID
     Dosage: 800 MG, UNK
     Route: 048
     Dates: start: 20140416, end: 20140521
  48. EMEND [Concomitant]
     Active Substance: APREPITANT
     Dosage: 205 MG, UNK
     Route: 048
     Dates: start: 20140305, end: 20140306

REACTIONS (10)
  - Deep vein thrombosis [Recovering/Resolving]
  - Nausea [Recovered/Resolved]
  - Neurogenic bladder [Not Recovered/Not Resolved]
  - Pyrexia [Not Recovered/Not Resolved]
  - Pancytopenia [Recovering/Resolving]
  - Delirium [Not Recovered/Not Resolved]
  - Cellulitis [Recovering/Resolving]
  - Constipation [Recovering/Resolving]
  - Infection [Not Recovered/Not Resolved]
  - Somnolence [Recovering/Resolving]

NARRATIVE: CASE EVENT DATE: 20140122
